FAERS Safety Report 7759582-4 (Version None)
Quarter: 2011Q3

REPORT INFORMATION
  Report Type: 
  Country: None (occurrence: None)
  Receive Date: 20110919
  Receipt Date: 20110912
  Transmission Date: 20111222
  Serious: Yes (Hospitalization)
  Sender: FDA-Public Use
  Company Number: CO-ROCHE-802289

PATIENT
  Sex: Female

DRUGS (1)
  1. METHOXY POLYETHYLENE GLYCOL-EPOETIN BETA [Suspect]
     Dosage: FREQUENCY: EVERY MONTH.
     Route: 058
     Dates: start: 20110106

REACTIONS (3)
  - URINARY TRACT INFECTION [None]
  - HYPERTENSION [None]
  - HYPOGLYCAEMIA [None]
